FAERS Safety Report 20775782 (Version 6)
Quarter: 2025Q1

REPORT INFORMATION
  Report Type: Spontaneous
  Country: US (occurrence: US)
  Receive Date: 20220502
  Receipt Date: 20250304
  Transmission Date: 20250409
  Serious: Yes (Hospitalization, Other)
  Sender: PFIZER
  Company Number: US-PFIZER INC-2017181507

PATIENT
  Age: 69 Year
  Sex: Female
  Weight: 68.04 kg

DRUGS (9)
  1. XELJANZ [Suspect]
     Active Substance: TOFACITINIB CITRATE
     Indication: Rheumatoid arthritis
     Dosage: 5 MG, 2X/DAY
     Route: 048
     Dates: start: 2016
  2. XELJANZ [Suspect]
     Active Substance: TOFACITINIB CITRATE
     Dosage: 5 MG, 1X/DAY
     Route: 048
  3. XELJANZ [Suspect]
     Active Substance: TOFACITINIB CITRATE
     Dosage: 5 MG, 2X/DAY
     Route: 048
     Dates: end: 20240529
  4. XELJANZ [Suspect]
     Active Substance: TOFACITINIB CITRATE
     Dates: start: 20240605
  5. METHOTREXATE [Concomitant]
     Active Substance: METHOTREXATE
     Indication: Rheumatoid arthritis
     Dosage: 20 MG, WEEKLY
     Route: 048
  6. FOLIC ACID [Concomitant]
     Active Substance: FOLIC ACID
     Indication: Immune system disorder
     Dosage: 1 MG, DAILY
     Route: 048
     Dates: start: 2016
  7. ALENDRONATE [Concomitant]
     Active Substance: ALENDRONATE SODIUM
     Indication: Osteoporosis
     Dosage: 70 MG, WEEKLY
     Route: 048
     Dates: start: 2014
  8. PROAIR HFA [Concomitant]
     Active Substance: ALBUTEROL SULFATE
     Indication: Chronic obstructive pulmonary disease
     Dosage: 2 DF, DAILY
     Route: 055
     Dates: start: 2016
  9. DOXYLAMINE [Concomitant]
     Active Substance: DOXYLAMINE
     Indication: Sleep disorder
     Dates: start: 202405

REACTIONS (7)
  - Diverticulitis [Unknown]
  - Colonic abscess [Unknown]
  - Lung neoplasm malignant [Unknown]
  - Influenza [Unknown]
  - Dysphonia [Unknown]
  - Nervousness [Unknown]
  - Product administration error [Unknown]

NARRATIVE: CASE EVENT DATE: 20240501
